FAERS Safety Report 19903212 (Version 3)
Quarter: 2021Q4

REPORT INFORMATION
  Report Type: Spontaneous
  Country: TR (occurrence: TR)
  Receive Date: 20211001
  Receipt Date: 20211122
  Transmission Date: 20220303
  Serious: Yes (Hospitalization)
  Sender: FDA-Public Use
  Company Number: TR-NOVOPROD-850970

PATIENT
  Sex: Female
  Weight: 2.2 kg

DRUGS (3)
  1. NOVORAPID [Suspect]
     Active Substance: INSULIN ASPART
     Indication: Gestational diabetes
     Dosage: 4 IU, TID
     Route: 064
     Dates: end: 20210729
  2. MAGNESIUM [Concomitant]
     Active Substance: MAGNESIUM
     Indication: Pregnancy
     Dosage: UNK
     Route: 064
  3. IRON [Concomitant]
     Active Substance: IRON
     Dosage: UNK
     Route: 064

REACTIONS (2)
  - Premature baby [Recovered/Resolved]
  - Foetal exposure during pregnancy [Recovered/Resolved]

NARRATIVE: CASE EVENT DATE: 20210701
